FAERS Safety Report 14104506 (Version 1)
Quarter: 2017Q4

REPORT INFORMATION
  Report Type: Spontaneous
  Country: DE (occurrence: DE)
  Receive Date: 20171018
  Receipt Date: 20171018
  Transmission Date: 20180321
  Serious: Yes (Other)
  Sender: FDA-Public Use
  Company Number: DE-ASTRAZENECA-2017SF04612

PATIENT
  Age: 49 Year
  Sex: Female
  Weight: 112 kg

DRUGS (10)
  1. GLIMEPIRIDE. [Concomitant]
     Active Substance: GLIMEPIRIDE
     Dosage: 3MG
     Dates: start: 2000
  2. FERRO SANOL [Concomitant]
     Active Substance: FERROUS GLYCINE SULFATE
  3. VENLAFAXINE [Concomitant]
     Active Substance: VENLAFAXINE HYDROCHLORIDE
  4. CHLORMADINONE ACETATE [Concomitant]
     Active Substance: CHLORMADINONE ACETATE
     Route: 048
  5. METFORMIN [Concomitant]
     Active Substance: METFORMIN HYDROCHLORIDE
     Dates: start: 2000
  6. CETIRIZINE [Concomitant]
     Active Substance: CETIRIZINE HYDROCHLORIDE
  7. LEVONORGESTREL. [Concomitant]
     Active Substance: LEVONORGESTREL
     Route: 048
  8. BYETTA [Suspect]
     Active Substance: EXENATIDE
     Dosage: 10 MICROGRAM
     Route: 058
     Dates: start: 2000
  9. ASPIRIN. [Concomitant]
     Active Substance: ASPIRIN
  10. IRBESARTAN. [Concomitant]
     Active Substance: IRBESARTAN
     Dosage: 300MG
     Dates: start: 2000

REACTIONS (2)
  - Deep vein thrombosis [Unknown]
  - Thrombophlebitis superficial [Unknown]

NARRATIVE: CASE EVENT DATE: 201703
